FAERS Safety Report 7248595-7 (Version None)
Quarter: 2011Q1

REPORT INFORMATION
  Report Type: 
  Country: None (occurrence: None)
  Receive Date: 20110128
  Receipt Date: 20110103
  Transmission Date: 20110831
  Serious: Yes (Death)
  Sender: FDA-Public Use
  Company Number: US-BAYER-2011-001420

PATIENT
  Age: 22 Year
  Sex: Male

DRUGS (8)
  1. CLONAZEPAM [Suspect]
     Route: 048
  2. OXYCODONE HCL [Suspect]
     Route: 048
  3. ALPRAZOLAM [Suspect]
     Route: 048
  4. CYCLOBENZAPRINE [Suspect]
     Route: 048
  5. TRAZODONE [Suspect]
     Route: 048
  6. ZIPRASIDONE [Suspect]
     Route: 048
  7. NAPROXEN SODIUM [Suspect]
     Route: 048
  8. GABAPENTIN [Suspect]
     Route: 048

REACTIONS (3)
  - TOXICITY TO VARIOUS AGENTS [None]
  - CARDIAC ARREST [None]
  - RESPIRATORY ARREST [None]
